FAERS Safety Report 4336606-8 (Version None)
Quarter: 2004Q2

REPORT INFORMATION
  Report Type: 
  Country: None (occurrence: None)
  Receive Date: 20040409
  Receipt Date: 20040409
  Transmission Date: 20050107
  Serious: Yes (Hospitalization)
  Sender: FDA-Public Use
  Company Number: None

PATIENT
  Age: 54 Year
  Sex: Female
  Weight: 52.1637 kg

DRUGS (1)
  1. BEXTRA [Suspect]
     Indication: PSORIATIC ARTHROPATHY
     Dosage: 1 PER DAY  ORAL
     Route: 048
     Dates: start: 20040308, end: 20040316

REACTIONS (3)
  - RASH ERYTHEMATOUS [None]
  - RASH GENERALISED [None]
  - SKIN DISCOLOURATION [None]
